FAERS Safety Report 25901908 (Version 1)
Quarter: 2025Q4

REPORT INFORMATION
  Report Type: Spontaneous
  Country: US (occurrence: US)
  Receive Date: 20251009
  Receipt Date: 20251009
  Transmission Date: 20260117
  Serious: No
  Sender: SANOFI AVENTIS
  Company Number: US-SA-2025SA298786

PATIENT
  Age: 83 Year
  Sex: Male
  Weight: 54 kg

DRUGS (1)
  1. DUPIXENT [Suspect]
     Active Substance: DUPILUMAB
     Indication: Chronic spontaneous urticaria
     Dosage: 300 MG, BIM
     Route: 058
     Dates: start: 20250930

REACTIONS (3)
  - Pruritus [Unknown]
  - Hypoacusis [Unknown]
  - Rash [Unknown]

NARRATIVE: CASE EVENT DATE: 20250101
